FAERS Safety Report 7384286-X (Version None)
Quarter: 2011Q1

REPORT INFORMATION
  Report Type: 
  Country: None (occurrence: None)
  Receive Date: 20110330
  Receipt Date: 20110325
  Transmission Date: 20110831
  Serious: Yes (Other)
  Sender: FDA-Public Use
  Company Number: DE-MERCK-1103DEU00141

PATIENT
  Age: 51 Year
  Sex: Female

DRUGS (1)
  1. SINGULAIR [Suspect]
     Indication: ASTHMA
     Route: 048
     Dates: start: 20110324, end: 20110325

REACTIONS (3)
  - DYSPNOEA [None]
  - MUSCLE SPASMS [None]
  - DIZZINESS [None]
